FAERS Safety Report 15936928 (Version 1)
Quarter: 2019Q1

REPORT INFORMATION
  Report Type: Spontaneous
  Country: US (occurrence: US)
  Receive Date: 20190208
  Receipt Date: 20190208
  Transmission Date: 20190417
  Serious: Yes (Hospitalization, Other)
  Sender: FDA-Public Use
  Company Number: US-JNJFOC-20190128975

PATIENT
  Age: 71 Year
  Sex: Female
  Weight: 68.04 kg

DRUGS (4)
  1. XARELTO [Suspect]
     Active Substance: RIVAROXABAN
     Indication: THROMBOSIS
     Route: 048
     Dates: start: 201901, end: 201901
  2. FLONASE [Concomitant]
     Active Substance: FLUTICASONE PROPIONATE
     Indication: SINUS DISORDER
     Route: 065
  3. XARELTO [Suspect]
     Active Substance: RIVAROXABAN
     Indication: THROMBOSIS
     Dosage: 15 OR 20 MG
     Route: 048
     Dates: start: 20181224, end: 201901
  4. MUCINEX [Concomitant]
     Active Substance: GUAIFENESIN
     Indication: NASOPHARYNGITIS
     Route: 065

REACTIONS (7)
  - Internal haemorrhage [Unknown]
  - Loss of consciousness [Unknown]
  - Rectal haemorrhage [Unknown]
  - Blood count abnormal [Recovering/Resolving]
  - Nasopharyngitis [Unknown]
  - Nausea [Unknown]
  - Diplopia [Unknown]

NARRATIVE: CASE EVENT DATE: 201901
